FAERS Safety Report 5374130-4 (Version None)
Quarter: 2007Q2

REPORT INFORMATION
  Report Type: 
  Country: None (occurrence: None)
  Receive Date: 20070627
  Receipt Date: 20070625
  Transmission Date: 20071010
  Serious: Yes (Hospitalization)
  Sender: FDA-Public Use
  Company Number: 200706AGG00649

PATIENT
  Age: 68 Year
  Sex: Male

DRUGS (5)
  1. AGGRASTAT [Suspect]
     Indication: ACUTE CORONARY SYNDROME
     Dosage: (FOR 30 MINUTES FOR 0 DAYS INTRAVENOUS BOLUS), (BEFORE STARTING CORONARY ANGIOGRAPHY FOR 4 HOURS INT
     Dates: start: 20070529, end: 20070529
  2. AGGRASTAT [Suspect]
     Indication: ACUTE CORONARY SYNDROME
     Dosage: (FOR 30 MINUTES FOR 0 DAYS INTRAVENOUS BOLUS), (BEFORE STARTING CORONARY ANGIOGRAPHY FOR 4 HOURS INT
     Dates: start: 20070529, end: 20070529
  3. CLOPIDOGREL BISULFATE [Concomitant]
  4. ENOXAPARIN SODIUM [Concomitant]
  5. ASPIRIN [Concomitant]

REACTIONS (5)
  - HAEMOGLOBIN DECREASED [None]
  - HAEMORRHAGE [None]
  - PUNCTURE SITE HAEMORRHAGE [None]
  - SHOCK [None]
  - THROMBOCYTOPENIA [None]
